FAERS Safety Report 15788353 (Version 1)
Quarter: 2019Q1

REPORT INFORMATION
  Report Type: Spontaneous
  Country: US (occurrence: US)
  Receive Date: 20190104
  Receipt Date: 20190104
  Transmission Date: 20190417
  Serious: No
  Sender: FDA-Public Use
  Company Number: US-BAUSCH-BL-2018-033391

PATIENT
  Age: 44 Year
  Sex: Male
  Weight: 74.91 kg

DRUGS (3)
  1. APRISO [Suspect]
     Active Substance: MESALAMINE
     Indication: COLITIS ULCERATIVE
     Route: 048
     Dates: start: 201704, end: 201807
  2. APRISO [Suspect]
     Active Substance: MESALAMINE
     Route: 048
     Dates: start: 201811
  3. APRISO [Suspect]
     Active Substance: MESALAMINE
     Dosage: DOSE DECREASED
     Route: 048
     Dates: start: 201807

REACTIONS (3)
  - Intentional product use issue [Recovered/Resolved]
  - Abdominal discomfort [Recovered/Resolved]
  - Abdominal pain upper [Recovered/Resolved]

NARRATIVE: CASE EVENT DATE: 201807
